FAERS Safety Report 24177202 (Version 1)
Quarter: 2024Q3

REPORT INFORMATION
  Report Type: Report from Study
  Country: BE (occurrence: BE)
  Receive Date: 20240806
  Receipt Date: 20240806
  Transmission Date: 20241016
  Serious: Yes (Other)
  Sender: GILEAD
  Company Number: BE-GILEAD-2024-0682741

PATIENT
  Sex: Female
  Weight: 108 kg

DRUGS (7)
  1. BICTEGRAVIR\EMTRICITABINE\TENOFOVIR ALAFENAMIDE [Suspect]
     Active Substance: BICTEGRAVIR\EMTRICITABINE\TENOFOVIR ALAFENAMIDE
     Indication: HIV infection
     Dosage: 1 DOSAGE FORM, QD
     Route: 048
     Dates: start: 20230621
  2. ASPIRIN [Concomitant]
     Active Substance: ASPIRIN
     Indication: Thrombosis prophylaxis
     Dosage: UNK
  3. MOVICOL [Concomitant]
     Active Substance: POLYETHYLENE GLYCOL 3350\POTASSIUM CHLORIDE\SODIUM BICARBONATE\SODIUM CHLORIDE
     Indication: Constipation prophylaxis
     Dosage: UNK
  4. MINERALS\VITAMINS [Concomitant]
     Active Substance: MINERALS\VITAMINS
     Indication: Vitamin supplementation
     Dosage: UNK
  5. OXYTOCIN [Concomitant]
     Active Substance: OXYTOCIN
     Indication: Uterine hypertonus
     Dosage: UNK
     Dates: start: 20240627, end: 20240628
  6. PENICILLIN G [Concomitant]
     Active Substance: PENICILLIN G
     Indication: Infection prophylaxis
     Dosage: UNK
     Dates: start: 20240628, end: 20240628
  7. PAPAVERINE [Concomitant]
     Active Substance: PAPAVERINE
     Indication: Muscle spasms
     Dosage: UNK

REACTIONS (2)
  - Caesarean section [Recovered/Resolved]
  - Maternal exposure during pregnancy [Recovered/Resolved]

NARRATIVE: CASE EVENT DATE: 20230925
